FAERS Safety Report 21209996 (Version 3)
Quarter: 2022Q4

REPORT INFORMATION
  Report Type: Report from Study
  Country: GB (occurrence: GB)
  Receive Date: 20220813
  Receipt Date: 20221018
  Transmission Date: 20230113
  Serious: Yes (Other)
  Sender: FDA-Public Use
  Company Number: GB-NOVARTISPH-NVSC2022GB182413

PATIENT
  Sex: Female
  Weight: 113 kg

DRUGS (2)
  1. COSENTYX [Suspect]
     Active Substance: SECUKINUMAB
     Indication: Psoriasis
     Dosage: 300 MG, QMO
     Route: 058
  2. COSENTYX [Suspect]
     Active Substance: SECUKINUMAB
     Dosage: 300 MG, Q2W
     Route: 058

REACTIONS (6)
  - Breast cancer [Unknown]
  - Blister [Unknown]
  - Pain [Unknown]
  - Ill-defined disorder [Unknown]
  - Skin exfoliation [Unknown]
  - Drug ineffective [Unknown]
